FAERS Safety Report 13823387 (Version 4)
Quarter: 2017Q3

REPORT INFORMATION
  Report Type: Spontaneous
  Country: GB (occurrence: GB)
  Receive Date: 20170802
  Receipt Date: 20170901
  Transmission Date: 20171127
  Serious: Yes (Other)
  Sender: FDA-Public Use
  Company Number: GB-CONCORDIA PHARMACEUTICALS INC.-E2B_00008285

PATIENT
  Age: 39 Year
  Sex: Female

DRUGS (16)
  1. RITUXIMAB. [Suspect]
     Active Substance: RITUXIMAB
     Indication: URTICARIAL VASCULITIS
     Dosage: OVER 2 YEARS
     Route: 065
  2. PREDNISOLONE. [Suspect]
     Active Substance: PREDNISOLONE
     Indication: URTICARIAL VASCULITIS
     Dosage: OVER 2 YEARS
     Route: 065
  3. PREDNISOLONE. [Suspect]
     Active Substance: PREDNISOLONE
     Indication: HYPERSENSITIVITY VASCULITIS
  4. HYDROXYCHLOROQUINE [Suspect]
     Active Substance: HYDROXYCHLOROQUINE
     Indication: HYPERSENSITIVITY VASCULITIS
  5. DAPSONE. [Suspect]
     Active Substance: DAPSONE
     Indication: HYPERSENSITIVITY VASCULITIS
  6. COLCHICINE. [Suspect]
     Active Substance: COLCHICINE
     Indication: URTICARIAL VASCULITIS
     Dosage: OVER 2 YEARS
     Route: 065
  7. METHOTREXATE. [Suspect]
     Active Substance: METHOTREXATE
     Indication: URTICARIAL VASCULITIS
     Dosage: OVER 2 YEARS
     Route: 065
  8. METHOTREXATE. [Suspect]
     Active Substance: METHOTREXATE
     Indication: HYPERSENSITIVITY VASCULITIS
  9. AZATHIOPRINE. [Suspect]
     Active Substance: AZATHIOPRINE
     Indication: URTICARIAL VASCULITIS
     Dosage: OVER 2 YEARS
     Route: 065
  10. MYCOPHENOLATE MOFETIL. [Suspect]
     Active Substance: MYCOPHENOLATE MOFETIL
     Indication: URTICARIAL VASCULITIS
     Dosage: OVER 2 YEARS
     Route: 065
  11. COLCHICINE. [Suspect]
     Active Substance: COLCHICINE
     Indication: HYPERSENSITIVITY VASCULITIS
  12. DAPSONE. [Suspect]
     Active Substance: DAPSONE
     Indication: URTICARIAL VASCULITIS
     Dosage: OVER 2 YEARS
     Route: 065
  13. HYDROXYCHLOROQUINE [Suspect]
     Active Substance: HYDROXYCHLOROQUINE
     Indication: URTICARIAL VASCULITIS
     Dosage: OVER 2 YEARS
     Route: 065
  14. AZATHIOPRINE. [Suspect]
     Active Substance: AZATHIOPRINE
     Indication: HYPERSENSITIVITY VASCULITIS
  15. MYCOPHENOLATE MOFETIL. [Suspect]
     Active Substance: MYCOPHENOLATE MOFETIL
     Indication: HYPERSENSITIVITY VASCULITIS
  16. RITUXIMAB. [Suspect]
     Active Substance: RITUXIMAB
     Indication: HYPERSENSITIVITY VASCULITIS

REACTIONS (6)
  - Leukopenia [Unknown]
  - Off label use [Unknown]
  - Drug ineffective [Unknown]
  - Anaphylactic reaction [Unknown]
  - Alopecia [Unknown]
  - Lethargy [Unknown]
